FAERS Safety Report 8119065 (Version 3)
Quarter: 2013Q1

REPORT INFORMATION
  Report Type: Spontaneous
  Country: US (occurrence: US)
  Receive Date: 20110902
  Receipt Date: 20130215
  Transmission Date: 20140127
  Serious: Yes (Other)
  Sender: FDA-Public Use
  Company Number: US-ASTRAZENECA-2011SE12574

PATIENT
  Age: 575 Month
  Sex: Male
  Weight: 123.8 kg

DRUGS (29)
  1. ATENOLOL [Concomitant]
     Indication: HYPERTENSION
     Dates: start: 20071024
  2. ATENOLOL [Concomitant]
     Indication: HYPERTENSION
     Route: 048
     Dates: start: 20080214
  3. CLONAZEPAM [Concomitant]
     Dates: start: 20071027
  4. HYDROCHLOROT [Concomitant]
     Route: 048
     Dates: start: 20070316
  5. HYDROCHLOROT [Concomitant]
     Dates: start: 20080214
  6. HYDROCHLOROT [Concomitant]
     Dates: start: 20070220
  7. BUDEPRION XL [Concomitant]
     Dates: start: 20071027
  8. BUDEPRION XL [Concomitant]
     Route: 048
     Dates: start: 20080214
  9. BUDEPRION XL [Concomitant]
     Dates: start: 20070222
  10. ALPRAZOLAM [Concomitant]
     Dates: start: 20071102
  11. OMEPRAZOLE MAGNESIUM [Concomitant]
     Route: 048
     Dates: start: 20070316
  12. OMEPRAZOLE MAGNESIUM [Concomitant]
     Route: 048
     Dates: start: 20070220
  13. COZAAR [Concomitant]
     Route: 048
     Dates: start: 20070316
  14. CYMBALTA [Concomitant]
     Route: 048
     Dates: start: 20070316
  15. CYMBALTA [Concomitant]
     Route: 048
     Dates: start: 20070220
  16. IMITREX [Concomitant]
     Dosage: ONE TABLET DAILY PRN
     Route: 048
     Dates: start: 20070316
  17. LORAZEPAM [Concomitant]
     Dosage: ONE TABLET EVERY EIGHT HOURS PRN
     Route: 048
     Dates: start: 20070316
  18. OXYCODONE-ACETAMINOPHEN/PERCOCET [Concomitant]
     Indication: PAIN
     Dosage: 5-325 MG ONE TO TWO TABLETS EVERY SIX HOURS PRN
     Route: 048
     Dates: start: 20070316
  19. OXYCODONE-ACETAMINOPHEN/PERCOCET [Concomitant]
     Indication: PAIN
     Dosage: 40 DISPENSED ONE TO TWO EVERY FOUR TO SIX HOURS PRN
     Route: 048
     Dates: start: 20070220
  20. MULTIVITAMIN WITH IRON [Concomitant]
     Dosage: ONE DAILY
     Dates: start: 20070220
  21. FLOMAX [Concomitant]
     Dates: start: 20070220
  22. SEROQUEL [Suspect]
     Route: 048
     Dates: start: 200710
  23. SEROQUEL [Suspect]
     Route: 048
     Dates: start: 20071010
  24. GABAPENTIN/NEURONTIN [Concomitant]
     Indication: MIGRAINE
     Dosage: THREE QD PRN
     Route: 048
     Dates: start: 20070316
  25. GABAPENTIN/NEURONTIN [Concomitant]
     Indication: MIGRAINE
     Dosage: TAKE 2 TABS Q AM AND 3 TABS Q PM
     Route: 048
     Dates: start: 20080214
  26. LEXAPRO [Concomitant]
     Dates: start: 20071015
  27. GEMFIBROZIL [Concomitant]
     Route: 048
     Dates: start: 20070316
  28. GEMFIBROZIL [Concomitant]
     Dates: start: 20080214
  29. ATENOLOL [Concomitant]
     Indication: HYPERTENSION
     Route: 048
     Dates: start: 20070316

REACTIONS (6)
  - Pancreatitis [Unknown]
  - Diabetic coma [Unknown]
  - Endocrine pancreatic disorder [Unknown]
  - Pancreatic insufficiency [Unknown]
  - Pancreatic disorder [Unknown]
  - Type 2 diabetes mellitus [Unknown]
